FAERS Safety Report 5063400-5 (Version None)
Quarter: 2006Q3

REPORT INFORMATION
  Report Type: 
  Country: None (occurrence: None)
  Receive Date: 20060727
  Receipt Date: 20060715
  Transmission Date: 20061208
  Serious: Yes (Other)
  Sender: FDA-Public Use
  Company Number: BR-BRISTOL-MYERS SQUIBB COMPANY-13443908

PATIENT
  Age: 82 Year
  Sex: Female

DRUGS (1)
  1. CAPTOPRIL [Suspect]

REACTIONS (2)
  - DIABETES MELLITUS [None]
  - EFFUSION [None]
